FAERS Safety Report 4562313-2 (Version None)
Quarter: 2005Q1

REPORT INFORMATION
  Report Type: 
  Country: None (occurrence: None)
  Receive Date: 20050124
  Receipt Date: 20041014
  Transmission Date: 20050727
  Serious: Yes (Hospitalization)
  Sender: FDA-Public Use
  Company Number: 196714

PATIENT
  Age: 65 Year
  Sex: Female

DRUGS (5)
  1. AVONEX [Suspect]
     Indication: MULTIPLE SCLEROSIS
     Dosage: 30 UG; QW; IM
     Route: 030
     Dates: start: 20010312, end: 20031201
  2. AVONEX [Suspect]
     Indication: MULTIPLE SCLEROSIS
     Dosage: 22.5 UG; QW; IM
     Route: 030
     Dates: start: 20040401
  3. AMITRIPTYLINE [Concomitant]
  4. SYNTHROID [Concomitant]
  5. CLONAZEPAM [Concomitant]

REACTIONS (10)
  - BLADDER DISORDER [None]
  - CHRONIC OBSTRUCTIVE PULMONARY DISEASE [None]
  - CONDITION AGGRAVATED [None]
  - DEPRESSION [None]
  - FALL [None]
  - INFLUENZA LIKE ILLNESS [None]
  - JOINT INJURY [None]
  - MULTIPLE SCLEROSIS [None]
  - MULTIPLE SCLEROSIS RELAPSE [None]
  - URINARY TRACT INFECTION [None]
